FAERS Safety Report 19988075 (Version 16)
Quarter: 2025Q2

REPORT INFORMATION
  Report Type: Report from Study
  Country: US (occurrence: US)
  Receive Date: 20211022
  Receipt Date: 20250424
  Transmission Date: 20250716
  Serious: Yes (Death, Life-Threatening, Hospitalization, Disabling, Other)
  Sender: TAKEDA
  Company Number: US-TAKEDA-US201926862

PATIENT
  Age: 74 Year
  Sex: Female
  Weight: 91 kg

DRUGS (26)
  1. HUMAN C1-ESTERASE INHIBITOR [Suspect]
     Active Substance: HUMAN C1-ESTERASE INHIBITOR
     Indication: Hereditary angioedema
  2. HUMAN C1-ESTERASE INHIBITOR [Suspect]
     Active Substance: HUMAN C1-ESTERASE INHIBITOR
     Indication: Prophylaxis
     Dosage: 1000 INTERNATIONAL UNIT, 1/WEEK
     Dates: start: 20161003
  3. HUMAN C1-ESTERASE INHIBITOR [Suspect]
     Active Substance: HUMAN C1-ESTERASE INHIBITOR
  4. HUMAN C1-ESTERASE INHIBITOR [Suspect]
     Active Substance: HUMAN C1-ESTERASE INHIBITOR
  5. HUMAN C1-ESTERASE INHIBITOR [Suspect]
     Active Substance: HUMAN C1-ESTERASE INHIBITOR
  6. FIRAZYR [Suspect]
     Active Substance: ICATIBANT ACETATE
     Indication: Immune system disorder
  7. FIRAZYR [Suspect]
     Active Substance: ICATIBANT ACETATE
     Indication: Enzyme abnormality
  8. FIRAZYR [Suspect]
     Active Substance: ICATIBANT ACETATE
     Indication: Hereditary angioedema
  9. FIRAZYR [Suspect]
     Active Substance: ICATIBANT ACETATE
  10. SODIUM CHLORIDE [Concomitant]
     Active Substance: SODIUM CHLORIDE
  11. STERILE WATER [Concomitant]
     Active Substance: WATER
  12. EPINEPHRINE [Concomitant]
     Active Substance: EPINEPHRINE
  13. VITAMIN B12 [Concomitant]
     Active Substance: CYANOCOBALAMIN
  14. SYNTHROID [Concomitant]
     Active Substance: LEVOTHYROXINE SODIUM
  15. APIDRA [Concomitant]
     Active Substance: INSULIN GLULISINE
  16. ATENOLOL [Concomitant]
     Active Substance: ATENOLOL
  17. LEVEMIR [Concomitant]
     Active Substance: INSULIN DETEMIR
  18. ASPIRIN [Concomitant]
     Active Substance: ASPIRIN
  19. POTASSIUM CHLORIDE [Concomitant]
     Active Substance: POTASSIUM CHLORIDE
  20. PROMETHAZINE [Concomitant]
     Active Substance: PROMETHAZINE HYDROCHLORIDE
  21. BENADRYL [Concomitant]
     Active Substance: DIPHENHYDRAMINE HYDROCHLORIDE
  22. ACETAMINOPHEN\HYDROCODONE [Concomitant]
     Active Substance: ACETAMINOPHEN\HYDROCODONE
  23. MAGNESIUM [Concomitant]
     Active Substance: MAGNESIUM
  24. NITROGLYCERIN [Concomitant]
     Active Substance: NITROGLYCERIN
  25. EPIPEN [Concomitant]
     Active Substance: EPINEPHRINE
  26. PLAVIX [Concomitant]
     Active Substance: CLOPIDOGREL BISULFATE

REACTIONS (20)
  - Death [Fatal]
  - Hereditary angioedema [Recovered/Resolved]
  - COVID-19 pneumonia [Recovered/Resolved]
  - Herpes zoster [Recovering/Resolving]
  - Peripheral nerve injury [Unknown]
  - COVID-19 [Recovering/Resolving]
  - Irritable bowel syndrome [Recovered/Resolved]
  - Back pain [Unknown]
  - Gait inability [Unknown]
  - Poor venous access [Unknown]
  - Eating disorder [Unknown]
  - Multiple allergies [Unknown]
  - Gastroenteritis viral [Unknown]
  - Feeling cold [Unknown]
  - Gait disturbance [Unknown]
  - Inability to afford medication [Unknown]
  - Product use issue [Unknown]
  - Inappropriate schedule of product administration [Unknown]
  - Diarrhoea [Unknown]
  - Product dose omission issue [Unknown]

NARRATIVE: CASE EVENT DATE: 20210830
